FAERS Safety Report 24868841 (Version 1)
Quarter: 2025Q1

REPORT INFORMATION
  Report Type: Spontaneous
  Country: GR (occurrence: GR)
  Receive Date: 20250121
  Receipt Date: 20250121
  Transmission Date: 20250409
  Serious: Yes (Hospitalization, Other)
  Sender: AMGEN
  Company Number: GR-AMGEN-GRCSP2025009146

PATIENT
  Age: 79 Year
  Sex: Female

DRUGS (3)
  1. BEVACIZUMAB [Suspect]
     Active Substance: BEVACIZUMAB
     Indication: Colon neoplasm
     Route: 065
  2. OXALIPLATIN [Suspect]
     Active Substance: OXALIPLATIN
     Indication: Colon neoplasm
     Route: 065
  3. CAPECITABINE [Concomitant]
     Active Substance: CAPECITABINE

REACTIONS (6)
  - Warm autoimmune haemolytic anaemia [Unknown]
  - Extravascular haemolysis [Recovering/Resolving]
  - Ocular icterus [Unknown]
  - Colon cancer [Unknown]
  - Hyperbilirubinaemia [Unknown]
  - Thrombocytopenia [Unknown]
